FAERS Safety Report 7621991-1 (Version None)
Quarter: 2011Q3

REPORT INFORMATION
  Report Type: 
  Country: None (occurrence: None)
  Receive Date: 20110720
  Receipt Date: 20110128
  Transmission Date: 20111222
  Serious: Yes (Other)
  Sender: FDA-Public Use
  Company Number: JP-BAYER-2010-005174

PATIENT
  Age: 76 Year
  Sex: Female
  Weight: 54 kg

DRUGS (3)
  1. ASPIRIN [Suspect]
     Indication: CEREBRAL INFARCTION
     Dosage: DAILY DOSE 100 MG
     Route: 048
     Dates: start: 20041117, end: 20101215
  2. CARNACULIN [KALLIDINOGENASE] [Concomitant]
     Indication: HYPERTENSION
     Dosage: DAILY DOSE 3 DF
     Route: 048
     Dates: start: 20061101
  3. UNKNOWN DRUG [Concomitant]
     Indication: HYPERTENSION

REACTIONS (1)
  - SMALL INTESTINE ULCER [None]
